FAERS Safety Report 24258957 (Version 2)
Quarter: 2024Q4

REPORT INFORMATION
  Report Type: Spontaneous
  Country: US (occurrence: US)
  Receive Date: 20240828
  Receipt Date: 20241104
  Transmission Date: 20250114
  Serious: No
  Sender: ALEXION PHARMACEUTICALS
  Company Number: 2024A179278

PATIENT
  Age: 72 Year

DRUGS (4)
  1. BUDESONIDE [Suspect]
     Active Substance: BUDESONIDE
     Dosage: 160 UG, TWO TIMES A DAY
  2. BUDESONIDE [Suspect]
     Active Substance: BUDESONIDE
     Dosage: 160 UG, TWO TIMES A DAY
  3. BUDESONIDE [Suspect]
     Active Substance: BUDESONIDE
     Dosage: 160 UG, TWO TIMES A DAY
  4. BUDESONIDE [Suspect]
     Active Substance: BUDESONIDE
     Dosage: 160 UG, TWO TIMES A DAY

REACTIONS (5)
  - Thyroid disorder [Unknown]
  - Throat irritation [Unknown]
  - Incorrect dose administered by device [Unknown]
  - Device use issue [Unknown]
  - Device delivery system issue [Unknown]
